FAERS Safety Report 14300526 (Version 6)
Quarter: 2018Q2

REPORT INFORMATION
  Report Type: Spontaneous
  Country: SK (occurrence: SK)
  Receive Date: 20171219
  Receipt Date: 20180420
  Transmission Date: 20180711
  Serious: Yes (Hospitalization, Other)
  Sender: FDA-Public Use
  Company Number: SK-009507513-1710SVK003999

PATIENT
  Age: 37 Year
  Sex: Male

DRUGS (1)
  1. DIPROPHOS [Suspect]
     Active Substance: BETAMETHASONE DIPROPIONATE\BETAMETHASONE SODIUM PHOSPHATE
     Indication: NERVE COMPRESSION
     Dosage: A DOSE 1 ML INJECTION, ONE TIME IN THE GLUTEUS MUSCLE, NERVE COMPRESSION IN TOTAL
     Route: 030
     Dates: start: 20171004, end: 20171004

REACTIONS (41)
  - Testicular failure [Not Recovered/Not Resolved]
  - Anger [Unknown]
  - Cerebral disorder [Unknown]
  - Testicular atrophy [Not Recovered/Not Resolved]
  - Alopecia [Not Recovered/Not Resolved]
  - Influenza like illness [Not Recovered/Not Resolved]
  - Hyperhidrosis [Not Recovered/Not Resolved]
  - Dysgeusia [Not Recovered/Not Resolved]
  - Muscle atrophy [Unknown]
  - Migraine [Unknown]
  - Arthralgia [Not Recovered/Not Resolved]
  - Hypertension [Not Recovered/Not Resolved]
  - Erythema [Not Recovered/Not Resolved]
  - Blood aldosterone decreased [Unknown]
  - Disturbance in attention [Unknown]
  - Blood corticotrophin increased [Unknown]
  - Psychopathic personality [Unknown]
  - Radiculopathy [Unknown]
  - Headache [Unknown]
  - Weight increased [Unknown]
  - Myalgia [Not Recovered/Not Resolved]
  - Cortisol deficiency [Unknown]
  - Pain [Not Recovered/Not Resolved]
  - Lethargy [Not Recovered/Not Resolved]
  - Anhedonia [Unknown]
  - Memory impairment [Unknown]
  - Emotional poverty [Not Recovered/Not Resolved]
  - Chills [Not Recovered/Not Resolved]
  - Libido decreased [Not Recovered/Not Resolved]
  - Emotional disorder [Unknown]
  - Nervous system disorder [Unknown]
  - Chest discomfort [Unknown]
  - Cardiac discomfort [Not Recovered/Not Resolved]
  - Crying [Unknown]
  - Aggression [Unknown]
  - Somatic symptom disorder [Unknown]
  - Skin disorder [Unknown]
  - General physical health deterioration [Not Recovered/Not Resolved]
  - Arthropathy [Unknown]
  - Insomnia [Not Recovered/Not Resolved]
  - Tension [Not Recovered/Not Resolved]

NARRATIVE: CASE EVENT DATE: 2017
